FAERS Safety Report 13511762 (Version 4)
Quarter: 2017Q3

REPORT INFORMATION
  Report Type: Spontaneous
  Country: US (occurrence: US)
  Receive Date: 20170504
  Receipt Date: 20170726
  Transmission Date: 20171127
  Serious: No
  Sender: FDA-Public Use
  Company Number: US-009507513-1704USA014017

PATIENT
  Age: 29 Year
  Sex: Female
  Weight: 50.79 kg

DRUGS (1)
  1. NEXPLANON [Suspect]
     Active Substance: ETONOGESTREL
     Indication: CONTRACEPTION
     Dosage: 1 IMPLANT EVERY 3 YEARS
     Route: 058
     Dates: start: 20151009, end: 20170605

REACTIONS (8)
  - Migration of implanted drug [Unknown]
  - Device deployment issue [Not Recovered/Not Resolved]
  - Device difficult to use [Not Recovered/Not Resolved]
  - Dry skin [Unknown]
  - Expired product administered [Unknown]
  - Vaginal haemorrhage [Not Recovered/Not Resolved]
  - Menstruation irregular [Recovered/Resolved]
  - Weight increased [Unknown]

NARRATIVE: CASE EVENT DATE: 201612
